FAERS Safety Report 25248274 (Version 2)
Quarter: 2025Q2

REPORT INFORMATION
  Report Type: Spontaneous
  Country: US (occurrence: US)
  Receive Date: 20250429
  Receipt Date: 20250505
  Transmission Date: 20250716
  Serious: No
  Sender: AMGEN
  Company Number: US-AMGEN-USASP2025081485

PATIENT
  Age: 59 Year
  Sex: Female

DRUGS (1)
  1. REPATHA [Suspect]
     Active Substance: EVOLOCUMAB
     Indication: Hypercholesterolaemia
     Route: 065

REACTIONS (3)
  - Device difficult to use [Unknown]
  - Dysarthria [Unknown]
  - Tearfulness [Unknown]

NARRATIVE: CASE EVENT DATE: 20250421
